FAERS Safety Report 18686832 (Version 1)
Quarter: 2020Q4

REPORT INFORMATION
  Report Type: Spontaneous
  Country: CN (occurrence: CN)
  Receive Date: 20201231
  Receipt Date: 20201231
  Transmission Date: 20210114
  Serious: Yes (Life-Threatening)
  Sender: FDA-Public Use
  Company Number: CN-BAYER-2020-286028

PATIENT
  Age: 39 Year
  Sex: Female
  Weight: 55 kg

DRUGS (1)
  1. AVELOX [Suspect]
     Active Substance: MOXIFLOXACIN HYDROCHLORIDE
     Indication: PNEUMONIA
     Dosage: 250 ML, BID
     Route: 041
     Dates: start: 20201223, end: 20201224

REACTIONS (4)
  - Off label use [None]
  - Puncture site pain [Unknown]
  - Contraindicated product administered [None]
  - Maternal exposure during pregnancy [None]

NARRATIVE: CASE EVENT DATE: 20201223
